FAERS Safety Report 20483496 (Version 1)
Quarter: 2022Q1

REPORT INFORMATION
  Report Type: Spontaneous
  Country: US (occurrence: US)
  Receive Date: 20220217
  Receipt Date: 20220217
  Transmission Date: 20220423
  Serious: No
  Sender: FDA-Public Use
  Company Number: US-drreddys-SPO/USA/22/0146876

PATIENT
  Age: 26 Year
  Sex: Female

DRUGS (1)
  1. ZENATANE [Suspect]
     Active Substance: ISOTRETINOIN
     Indication: Product used for unknown indication
     Dosage: RMA ISSUE DATE: 11 JANUARY 2022 12:07:53 PM, 10 DECEMBER 2021 03:39:55 PM, 09 NOVEMBER 2021 10:04:20

REACTIONS (1)
  - Adverse drug reaction [Not Recovered/Not Resolved]
